FAERS Safety Report 12974125 (Version 1)
Quarter: 2016Q4

REPORT INFORMATION
  Report Type: Spontaneous
  Country: EE (occurrence: EE)
  Receive Date: 20161125
  Receipt Date: 20161125
  Transmission Date: 20170207
  Serious: Yes (Other)
  Sender: FDA-Public Use
  Company Number: EE-ROCHE-1836351

PATIENT
  Age: 34 Year
  Sex: Female
  Weight: 47 kg

DRUGS (27)
  1. RITUXIMAB [Suspect]
     Active Substance: RITUXIMAB
     Dosage: CYCLE 2
     Route: 042
     Dates: start: 20150925
  2. ETOPOSIDE. [Suspect]
     Active Substance: ETOPOSIDE
     Dosage: CYCLE 3
     Route: 042
     Dates: start: 20151018
  3. ONCOVIN [Suspect]
     Active Substance: VINCRISTINE SULFATE
     Indication: PRODUCT USED FOR UNKNOWN INDICATION
     Dosage: CYCLE 1
     Route: 042
     Dates: start: 20150904
  4. ONCOVIN [Suspect]
     Active Substance: VINCRISTINE SULFATE
     Dosage: CYCLE 3
     Route: 042
     Dates: start: 20151018
  5. RITUXIMAB [Suspect]
     Active Substance: RITUXIMAB
     Indication: PRODUCT USED FOR UNKNOWN INDICATION
     Dosage: CYCLE 1
     Route: 042
     Dates: start: 20150904
  6. ETOPOSIDE. [Suspect]
     Active Substance: ETOPOSIDE
     Indication: PRODUCT USED FOR UNKNOWN INDICATION
     Dosage: CYCLE 1
     Route: 042
     Dates: start: 20150904
  7. ONCOVIN [Suspect]
     Active Substance: VINCRISTINE SULFATE
     Dosage: CYCLE 2
     Route: 042
     Dates: start: 20150925
  8. CYCLOPHOSPHAMIDE. [Suspect]
     Active Substance: CYCLOPHOSPHAMIDE
     Dosage: CYCLE 1
     Route: 042
     Dates: start: 20151018
  9. METHOTREXATE. [Suspect]
     Active Substance: METHOTREXATE
     Dosage: HIGH DOSE
     Route: 042
     Dates: start: 20150925
  10. RITUXIMAB [Suspect]
     Active Substance: RITUXIMAB
     Dosage: 3RD DAY
     Route: 042
     Dates: start: 20151112
  11. PREDNISOLONE. [Suspect]
     Active Substance: PREDNISOLONE
     Indication: PRODUCT USED FOR UNKNOWN INDICATION
     Dosage: CYCLE 1
     Route: 042
     Dates: start: 20150904
  12. PREDNISOLONE. [Suspect]
     Active Substance: PREDNISOLONE
     Dosage: CYCLE 2
     Route: 042
     Dates: start: 20150925
  13. ONCOVIN [Suspect]
     Active Substance: VINCRISTINE SULFATE
     Dosage: CYCLE 5
     Route: 042
     Dates: start: 20151207
  14. RITUXIMAB [Suspect]
     Active Substance: RITUXIMAB
     Dosage: CYCLE 5
     Route: 042
     Dates: start: 20151207
  15. CYCLOPHOSPHAMIDE. [Suspect]
     Active Substance: CYCLOPHOSPHAMIDE
     Dosage: CYCLE 5
     Route: 042
     Dates: start: 20151207
  16. DOXORUBICIN [Suspect]
     Active Substance: DOXORUBICIN
     Dosage: CYCLE 2
     Route: 042
     Dates: start: 20150925
  17. CYCLOPHOSPHAMIDE. [Suspect]
     Active Substance: CYCLOPHOSPHAMIDE
     Dosage: CYCLE 2
     Route: 042
     Dates: start: 20150925
  18. DOXORUBICIN [Suspect]
     Active Substance: DOXORUBICIN
     Indication: PRODUCT USED FOR UNKNOWN INDICATION
     Dosage: CYCLE 1
     Route: 042
     Dates: start: 20150904
  19. METHOTREXATE. [Suspect]
     Active Substance: METHOTREXATE
     Indication: PRODUCT USED FOR UNKNOWN INDICATION
     Route: 037
     Dates: start: 20150904
  20. ETOPOSIDE. [Suspect]
     Active Substance: ETOPOSIDE
     Dosage: CYCLE 2
     Route: 042
     Dates: start: 20150925
  21. ETOPOSIDE. [Suspect]
     Active Substance: ETOPOSIDE
     Dosage: CYCLE 5
     Route: 042
     Dates: start: 20151207
  22. CYCLOPHOSPHAMIDE. [Suspect]
     Active Substance: CYCLOPHOSPHAMIDE
     Indication: PRODUCT USED FOR UNKNOWN INDICATION
     Dosage: CYCLE 1
     Route: 042
     Dates: start: 20150904
  23. DOXORUBICIN [Suspect]
     Active Substance: DOXORUBICIN
     Dosage: CYCLE 3
     Route: 042
     Dates: start: 20151018
  24. DOXORUBICIN [Suspect]
     Active Substance: DOXORUBICIN
     Dosage: CYCLE 5
     Route: 042
     Dates: start: 20151207
  25. RITUXIMAB [Suspect]
     Active Substance: RITUXIMAB
     Dosage: CYCLE 3
     Route: 042
     Dates: start: 20151018
  26. PREDNISOLONE. [Suspect]
     Active Substance: PREDNISOLONE
     Dosage: CYCLE 3
     Route: 042
     Dates: start: 20151018
  27. PREDNISOLONE. [Suspect]
     Active Substance: PREDNISOLONE
     Dosage: CYCLE 5
     Route: 042
     Dates: start: 20151207

REACTIONS (4)
  - Fatigue [Unknown]
  - Drug ineffective [Unknown]
  - Leukopenia [Unknown]
  - Mucosal inflammation [Unknown]

NARRATIVE: CASE EVENT DATE: 20150904
